FAERS Safety Report 7113804-1 (Version None)
Quarter: 2010Q4

REPORT INFORMATION
  Report Type: 
  Country: None (occurrence: None)
  Receive Date: 20101119
  Receipt Date: 20101111
  Transmission Date: 20110411
  Serious: Yes (Hospitalization, Other)
  Sender: FDA-Public Use
  Company Number: IE-PURDUE-GBR-2010-0007326

PATIENT
  Sex: Male

DRUGS (3)
  1. OXYCONTIN [Suspect]
     Indication: NEURALGIA
     Dosage: 120 MG, DAILY
  2. OXYNORM CAPSULES [Suspect]
     Indication: NEURALGIA
     Dosage: 60 MG, DAILY
  3. LYRICA [Concomitant]

REACTIONS (8)
  - ARTERIAL DISORDER [None]
  - ARTERIOSCLEROSIS [None]
  - CONSTIPATION [None]
  - DYSPNOEA [None]
  - MEMORY IMPAIRMENT [None]
  - RESPIRATORY DISORDER [None]
  - ULCER [None]
  - VEIN DISORDER [None]
